FAERS Safety Report 21532435 (Version 1)
Quarter: 2022Q4

REPORT INFORMATION
  Report Type: Spontaneous
  Country: BR (occurrence: BR)
  Receive Date: 20221101
  Receipt Date: 20221101
  Transmission Date: 20230112
  Serious: Yes (Other)
  Sender: FDA-Public Use
  Company Number: BR-PFIZER INC-202201252867

PATIENT
  Sex: Male

DRUGS (1)
  1. GENOTROPIN [Suspect]
     Active Substance: SOMATROPIN
     Dosage: 1.45 MG

REACTIONS (6)
  - Product prescribing error [Unknown]
  - Incorrect dose administered by device [Unknown]
  - Device use issue [Unknown]
  - Somnolence [Unknown]
  - Hypoglycaemia [Unknown]
  - Device failure [Unknown]

NARRATIVE: CASE EVENT DATE: 20221015
